FAERS Safety Report 11684208 (Version 4)
Quarter: 2016Q2

REPORT INFORMATION
  Report Type: Spontaneous
  Country: KR (occurrence: KR)
  Receive Date: 20151029
  Receipt Date: 20160623
  Transmission Date: 20160815
  Serious: Yes (Hospitalization)
  Sender: FDA-Public Use
  Company Number: KR-009507513-1510KOR014166

PATIENT
  Age: 47 Year
  Sex: Male
  Weight: 61 kg

DRUGS (11)
  1. ALOXI [Concomitant]
     Active Substance: PALONOSETRON HYDROCHLORIDE
     Indication: ADJUVANT THERAPY
     Dosage: 0.25 MG, QD
     Route: 042
     Dates: start: 20150807, end: 20150807
  2. EMEND (FOSAPREPITANT DIMEGLUMINE) [Suspect]
     Active Substance: FOSAPREPITANT DIMEGLUMINE
     Indication: PROPHYLAXIS OF NAUSEA AND VOMITING
     Dosage: 150 MG, ONCE
     Route: 042
     Dates: start: 20150807, end: 20150807
  3. DEXAMETHASONE SODIUM PHOSPHATE. [Concomitant]
     Active Substance: DEXAMETHASONE SODIUM PHOSPHATE
     Indication: ADJUVANT THERAPY
     Dosage: 12 MG, QD
     Route: 042
     Dates: start: 20150807, end: 20150807
  4. LASIX [Concomitant]
     Active Substance: FUROSEMIDE
     Indication: PROPHYLAXIS
     Dosage: 40 MG, QD
     Route: 048
     Dates: start: 20150807, end: 20150807
  5. TS-1 [Concomitant]
     Active Substance: GIMERACIL\OTERACIL\TEGAFUR
     Indication: ADENOCARCINOMA GASTRIC
     Dosage: 3 CAPSULE, BID
     Route: 048
     Dates: start: 20150807, end: 20150820
  6. DEXAMETHASONE. [Concomitant]
     Active Substance: DEXAMETHASONE
     Indication: ADJUVANT THERAPY
     Dosage: 8 MG, QD
     Route: 048
     Dates: start: 20150807, end: 20150809
  7. CISPLAN [Concomitant]
     Active Substance: CISPLATIN
     Indication: ADENOCARCINOMA GASTRIC
     Dosage: 100 MG, QD (STRENGTH 10/20 MG.ML)
     Route: 042
     Dates: start: 20150807, end: 20150807
  8. FEROBA U [Concomitant]
     Indication: ANAEMIA PROPHYLAXIS
     Dosage: 512 MG, QD
     Route: 048
     Dates: start: 20150807, end: 20150814
  9. VITAMEDIN CAPSULES [Concomitant]
     Indication: VITAMIN SUPPLEMENTATION
     Dosage: 1 CAPSULE, TID
     Route: 048
     Dates: start: 20150728, end: 20150818
  10. TANTUM [Concomitant]
     Active Substance: BENZYDAMINE HYDROCHLORIDE
     Indication: PROPHYLAXIS
     Dosage: 200 ML, TID
     Route: 048
     Dates: start: 20150807, end: 20150813
  11. LOPERAMIDE HYDROCHLORIDE. [Concomitant]
     Active Substance: LOPERAMIDE HYDROCHLORIDE
     Indication: PROPHYLAXIS AGAINST DIARRHOEA
     Dosage: 2 MG, TID
     Route: 048
     Dates: start: 20150807, end: 20150807

REACTIONS (2)
  - Dysphagia [Recovered/Resolved]
  - Hypophagia [Recovered/Resolved]

NARRATIVE: CASE EVENT DATE: 20150808
